FAERS Safety Report 10160856 (Version 1)
Quarter: 2014Q2

REPORT INFORMATION
  Report Type: Spontaneous
  Country: US (occurrence: None)
  Receive Date: 20140507
  Receipt Date: 20140507
  Transmission Date: 20141212
  Serious: No
  Sender: FDA-Public Use
  Company Number: None

PATIENT
  Age: 41 Year
  Sex: Female

DRUGS (2)
  1. ORTHO MICRONOR [Suspect]
     Indication: MENORRHAGIA
     Route: 048
     Dates: start: 20140226
  2. CURAMIN [Suspect]
     Indication: ARTHRALGIA
     Route: 048
     Dates: start: 20140330

REACTIONS (1)
  - Hypertension [None]
